FAERS Safety Report 23929410 (Version 1)
Quarter: 2024Q2

REPORT INFORMATION
  Report Type: Report from Study
  Country: CA (occurrence: CA)
  Receive Date: 20240601
  Receipt Date: 20240601
  Transmission Date: 20240716
  Serious: Yes (Other)
  Sender: FDA-Public Use
  Company Number: CA-E2BLSMVVAL-CLI/CAN/24/0006806

PATIENT
  Age: 66 Year
  Sex: Female

DRUGS (2)
  1. ZOLEDRONIC ACID [Suspect]
     Active Substance: ZOLEDRONIC ACID
     Indication: Osteoporosis
     Dosage: 5 MG/100 ML, YEARLY.
     Route: 065
     Dates: start: 20230501
  2. NAPROXEN [Concomitant]
     Active Substance: NAPROXEN
     Indication: Arthralgia
     Dosage: 5 MG/100 ML, YEARLY.
     Dates: start: 20230501

REACTIONS (4)
  - Multiple sclerosis [Unknown]
  - Nasopharyngitis [Unknown]
  - Influenza [Unknown]
  - Arthralgia [Unknown]
